FAERS Safety Report 15901604 (Version 2)
Quarter: 2019Q1

REPORT INFORMATION
  Report Type: Spontaneous
  Country: ES (occurrence: ES)
  Receive Date: 20190201
  Receipt Date: 20190227
  Transmission Date: 20190417
  Serious: Yes (Other)
  Sender: FDA-Public Use
  Company Number: PHHY2019ES019043

PATIENT
  Age: 53 Year
  Sex: Female

DRUGS (2)
  1. METHOTREXATE. [Suspect]
     Active Substance: METHOTREXATE
     Indication: CROHN^S DISEASE
     Dosage: 15 MG, QW
     Route: 065
  2. ADALIMUMAB [Suspect]
     Active Substance: ADALIMUMAB
     Indication: CROHN^S DISEASE
     Dosage: 40 G, EVERY 15 DAYS
     Route: 065

REACTIONS (11)
  - Eosinophil morphology abnormal [Unknown]
  - Aspiration bone marrow abnormal [Unknown]
  - Weight decreased [Unknown]
  - Fatigue [Unknown]
  - Product use in unapproved indication [Unknown]
  - Eosinophilia [Unknown]
  - Skin ulcer [Unknown]
  - Thrombosis [Unknown]
  - Skin necrosis [Unknown]
  - Pancytopenia [Recovered/Resolved]
  - Pyrexia [Unknown]
